FAERS Safety Report 8611918 (Version 4)
Quarter: 2012Q4

REPORT INFORMATION
  Report Type: 
  Country: DE (occurrence: DE)
  Receive Date: 20120613
  Receipt Date: 20121211
  Transmission Date: 20130627
  Serious: Yes (Hospitalization)
  Sender: FDA-Public Use
  Company Number: PHHY2012DE004006

PATIENT
  Age: 55 Year
  Sex: Female

DRUGS (5)
  1. EXTAVIA [Suspect]
     Indication: MULTIPLE SCLEROSIS
     Dosage: 1 ml, QOD (every other day)
     Route: 058
     Dates: start: 20090904
  2. VERAHEXAL [Concomitant]
     Indication: BLOOD PRESSURE
     Dosage: 0.5 DF, BID (120 at ?-0-?-0 per day)
     Route: 048
  3. GABAPENTIN [Concomitant]
     Indication: PAIN
     Dosage: 0.5 DF, QD (600 at 0-0-0-? per day)
     Route: 048
  4. MAGNESIUM VERLA [Concomitant]
     Indication: MUSCLE SPASMS
     Dosage: 2 DF, QD (0-0-0-2 per day)
     Route: 048
  5. TORASEMIDE [Concomitant]
     Indication: FLUID RETENTION
     Dosage: 1 DF, QD (0-0-0-1 per day)
     Route: 048

REACTIONS (7)
  - Type 2 diabetes mellitus [Recovered/Resolved]
  - Multiple sclerosis relapse [Recovered/Resolved]
  - Headache [Recovered/Resolved]
  - Pyrexia [Recovered/Resolved]
  - Chills [Recovered/Resolved]
  - Injection site induration [Not Recovered/Not Resolved]
  - Injection site erythema [Not Recovered/Not Resolved]
